FAERS Safety Report 5034339-6 (Version None)
Quarter: 2006Q2

REPORT INFORMATION
  Report Type: 
  Country: None (occurrence: None)
  Receive Date: 20060626
  Receipt Date: 20060613
  Transmission Date: 20061013
  Serious: Yes (Death, Life-Threatening, Hospitalization, Disabling)
  Sender: FDA-Public Use
  Company Number: MX-ROCHE-451321

PATIENT
  Age: 56 Year
  Sex: Male

DRUGS (24)
  1. MYCOPHENOLATE MOFETIL [Suspect]
     Route: 048
     Dates: start: 20050527, end: 20060306
  2. MYCOPHENOLATE MOFETIL [Suspect]
     Route: 048
     Dates: start: 20060307, end: 20060307
  3. MYCOPHENOLATE MOFETIL [Suspect]
     Route: 048
     Dates: start: 20060308, end: 20060309
  4. MYCOPHENOLATE MOFETIL [Suspect]
     Route: 048
     Dates: start: 20060310, end: 20060314
  5. MYCOPHENOLATE MOFETIL [Suspect]
     Route: 048
     Dates: start: 20060315, end: 20060406
  6. BLINDED TACROLIMUS [Suspect]
     Route: 048
     Dates: start: 20050511, end: 20060307
  7. BLINDED TACROLIMUS [Suspect]
     Route: 048
     Dates: start: 20060308, end: 20060314
  8. BLINDED TACROLIMUS [Suspect]
     Route: 048
     Dates: start: 20060315, end: 20060327
  9. BLINDED TACROLIMUS [Suspect]
     Route: 048
     Dates: start: 20060328, end: 20060429
  10. PREDNISONE [Suspect]
     Route: 048
     Dates: start: 20060215, end: 20060302
  11. PREDNISONE [Suspect]
     Route: 048
     Dates: start: 20060303, end: 20060308
  12. PREDNISONE [Suspect]
     Route: 048
     Dates: start: 20060314, end: 20060406
  13. PREDNISONE [Suspect]
     Route: 048
     Dates: start: 20060406, end: 20060406
  14. HYDROCORTISONE [Suspect]
     Route: 042
     Dates: start: 20060309, end: 20060313
  15. HYDROCORTISONE [Suspect]
     Route: 042
     Dates: start: 20060320, end: 20060323
  16. METHYLPREDNISOLONE [Suspect]
     Route: 042
     Dates: start: 20060331, end: 20060404
  17. CARVEDILOL [Concomitant]
     Dates: start: 20060116, end: 20060223
  18. OMEPRAZOLE [Concomitant]
     Dates: start: 20060211
  19. CLOPIDOGREL [Concomitant]
     Dates: start: 20060122
  20. ASPIRIN [Concomitant]
     Dates: start: 20050123, end: 20060223
  21. BUMETANIDE [Concomitant]
     Dates: start: 20060216, end: 20060223
  22. DIGOXIN [Concomitant]
     Dates: start: 20060125
  23. CAPTOPRIL [Concomitant]
     Dates: start: 20060113
  24. ISOSORBIDE [Concomitant]
     Dates: start: 20060202

REACTIONS (1)
  - PNEUMONITIS [None]
